FAERS Safety Report 5378980-X (Version None)
Quarter: 2007Q3

REPORT INFORMATION
  Report Type: 
  Country: None (occurrence: None)
  Receive Date: 20070705
  Receipt Date: 20070702
  Transmission Date: 20080115
  Serious: Yes (Other)
  Sender: FDA-Public Use
  Company Number: ES-BRISTOL-MYERS SQUIBB COMPANY-13832720

PATIENT
  Age: 56 Year
  Sex: Female

DRUGS (4)
  1. METHOTREXATE [Suspect]
     Indication: RHEUMATOID ARTHRITIS
  2. CYCLOSPORINE [Suspect]
  3. INFLIXIMAB [Suspect]
  4. ETANERCEPT [Suspect]

REACTIONS (3)
  - PANCREATITIS [None]
  - PNEUMONITIS [None]
  - PULMONARY TUBERCULOSIS [None]
